FAERS Safety Report 25273997 (Version 1)
Quarter: 2025Q2

REPORT INFORMATION
  Report Type: Spontaneous
  Country: US (occurrence: US)
  Receive Date: 20250506
  Receipt Date: 20250506
  Transmission Date: 20250716
  Serious: Yes (Hospitalization, Other)
  Sender: JUBILANT
  Company Number: None

PATIENT
  Age: 75 Year
  Sex: Male

DRUGS (1)
  1. PANTOPRAZOLE SODIUM [Suspect]
     Active Substance: PANTOPRAZOLE SODIUM
     Indication: Peptic ulcer
     Dosage: UNK UNK, ONCE PER DAY
     Route: 065

REACTIONS (2)
  - Small intestinal obstruction [Unknown]
  - Campylobacter infection [Unknown]
